FAERS Safety Report 6579018-9 (Version None)
Quarter: 2010Q1

REPORT INFORMATION
  Report Type: 
  Country: None (occurrence: None)
  Receive Date: 20100212
  Receipt Date: 20100209
  Transmission Date: 20100710
  Serious: Yes (Other)
  Sender: FDA-Public Use
  Company Number: US-RB-002484-10

PATIENT
  Age: 39 Year
  Sex: Male

DRUGS (2)
  1. MUCINEX D [Suspect]
     Route: 048
  2. XALATAN [Concomitant]

REACTIONS (2)
  - HYPOAESTHESIA FACIAL [None]
  - SWELLING FACE [None]
